FAERS Safety Report 7261816-X (Version None)
Quarter: 2011Q1

REPORT INFORMATION
  Report Type: 
  Country: None (occurrence: None)
  Receive Date: 20110130
  Receipt Date: 20101129
  Transmission Date: 20110831
  Serious: No
  Sender: FDA-Public Use
  Company Number: US-ABBOTT-10P-163-0688535-00

PATIENT
  Age: 54 Year
  Sex: Female

DRUGS (3)
  1. HUMIRA [Suspect]
     Indication: PSORIASIS
     Dosage: LOADING DOSE
     Dates: start: 20101121
  2. CITALOPRAM [Concomitant]
     Indication: ANXIETY
  3. MAXZIDE [Concomitant]
     Indication: HYPERTENSION

REACTIONS (1)
  - CONTUSION [None]
